FAERS Safety Report 10027262 (Version 8)
Quarter: 2015Q4

REPORT INFORMATION
  Report Type: Report from Study
  Country: US (occurrence: US)
  Receive Date: 20140321
  Receipt Date: 20151015
  Transmission Date: 20160304
  Serious: Yes (Hospitalization, Other)
  Sender: FDA-Public Use
  Company Number: US-SANOFI-AVENTIS-2013SA059711

PATIENT
  Age: 50 Year
  Sex: Female
  Weight: 115 kg

DRUGS (2)
  1. AUBAGIO [Suspect]
     Active Substance: TERIFLUNOMIDE
     Indication: MULTIPLE SCLEROSIS
     Route: 048
     Dates: start: 20130401
  2. AUBAGIO [Suspect]
     Active Substance: TERIFLUNOMIDE
     Indication: MULTIPLE SCLEROSIS
     Route: 048

REACTIONS (6)
  - Skin cancer [Unknown]
  - Stress [Unknown]
  - Weight decreased [Unknown]
  - Diarrhoea [Unknown]
  - Drug dose omission [Unknown]
  - Toe operation [Unknown]

NARRATIVE: CASE EVENT DATE: 201311
